FAERS Safety Report 25840935 (Version 2)
Quarter: 2025Q4

REPORT INFORMATION
  Report Type: Spontaneous
  Country: US (occurrence: None)
  Receive Date: 20250924
  Receipt Date: 20251121
  Transmission Date: 20260118
  Serious: No
  Sender: ORGANON
  Company Number: US-ORGANON-O2509USA001901

PATIENT
  Sex: Female
  Weight: 58.05 kg

DRUGS (1)
  1. NEXPLANON [Suspect]
     Active Substance: ETONOGESTREL
     Dosage: 1 IMPLANT 68 MG

REACTIONS (1)
  - Maternal exposure during pregnancy [Unknown]
